FAERS Safety Report 20850266 (Version 1)
Quarter: 2022Q2

REPORT INFORMATION
  Report Type: Spontaneous
  Country: US (occurrence: None)
  Receive Date: 20220518
  Receipt Date: 20220518
  Transmission Date: 20220720
  Serious: Yes (Other)
  Sender: FDA-Public Use
  Company Number: None

PATIENT
  Age: 61 Year
  Sex: Female
  Weight: 58.05 kg

DRUGS (1)
  1. PAXLOVID [Suspect]
     Active Substance: NIRMATRELVIR\RITONAVIR
     Indication: COVID-19
     Dates: start: 20220503, end: 20220508

REACTIONS (4)
  - Nausea [None]
  - Upper-airway cough syndrome [None]
  - Nasopharyngitis [None]
  - Coronavirus test positive [None]

NARRATIVE: CASE EVENT DATE: 20220516
